FAERS Safety Report 7030075-5 (Version None)
Quarter: 2010Q4

REPORT INFORMATION
  Report Type: 
  Country: None (occurrence: None)
  Receive Date: 20101006
  Receipt Date: 20100925
  Transmission Date: 20110411
  Serious: Yes (Other)
  Sender: FDA-Public Use
  Company Number: US-PFIZER INC-2010114320

PATIENT
  Sex: Female
  Weight: 68 kg

DRUGS (25)
  1. CHANTIX [Suspect]
     Indication: SMOKING CESSATION THERAPY
     Dosage: 0.5 MG, DAILY
     Route: 048
     Dates: start: 20100907, end: 20100901
  2. CHANTIX [Suspect]
     Dosage: UNK
     Route: 048
     Dates: start: 20100901, end: 20100923
  3. AZITHROMYCIN [Concomitant]
     Dosage: UNK
  4. RIFAMPIN [Concomitant]
     Dosage: UNK
  5. PREDNISONE [Concomitant]
     Dosage: UNK
  6. ETHAMBUTOL [Concomitant]
     Dosage: UNK
  7. POTASSIUM [Concomitant]
     Dosage: UNK
  8. CELEBREX [Concomitant]
     Dosage: UNK
  9. DOCUSATE [Concomitant]
     Dosage: UNK
  10. FERROUS SULFATE TAB [Concomitant]
     Dosage: UNK
  11. LEVAQUIN [Concomitant]
     Dosage: UNK
  12. GEODON [Concomitant]
     Dosage: UNK
  13. BENZONATATE [Concomitant]
     Dosage: UNK
  14. ADVAIR DISKUS 100/50 [Concomitant]
     Dosage: UNK
  15. RIFAXIMIN [Concomitant]
     Dosage: UNK
  16. SPIRONOLACTONE [Concomitant]
     Dosage: UNK
  17. FUROSEMIDE [Concomitant]
     Dosage: UNK
  18. OXYBUTYNIN [Concomitant]
     Dosage: UNK
  19. LORATADINE [Concomitant]
     Dosage: UNK
  20. TEMAZEPAM [Concomitant]
     Dosage: UNK
  21. LEXAPRO [Concomitant]
     Dosage: UNK
  22. WELLBUTRIN [Concomitant]
     Dosage: UNK
  23. TRAMADOL [Concomitant]
     Indication: PAIN
     Dosage: UNK
  24. ROPINIROLE [Concomitant]
     Indication: RESTLESS LEGS SYNDROME
     Dosage: UNK
  25. PROTONIX [Concomitant]
     Indication: ABDOMINAL DISCOMFORT
     Dosage: UNK

REACTIONS (2)
  - HEARING IMPAIRED [None]
  - LOSS OF CONSCIOUSNESS [None]
